FAERS Safety Report 11083534 (Version 5)
Quarter: 2015Q4

REPORT INFORMATION
  Report Type: Spontaneous
  Country: IT (occurrence: IT)
  Receive Date: 20150501
  Receipt Date: 20151111
  Transmission Date: 20160304
  Serious: Yes (Hospitalization, Other)
  Sender: FDA-Public Use
  Company Number: IT-GILEAD-2015-0151181

PATIENT
  Age: 64 Year
  Sex: Male

DRUGS (10)
  1. LASIX [Concomitant]
     Active Substance: FUROSEMIDE
     Indication: ASCITES
     Dosage: 25 MG, UNK
     Route: 048
     Dates: start: 2013
  2. NOVORAPID [Concomitant]
     Active Substance: INSULIN ASPART
     Indication: DIABETES MELLITUS
     Dosage: 20 IU, UNK
     Route: 042
     Dates: start: 2013
  3. SOVALDI [Suspect]
     Active Substance: SOFOSBUVIR
     Indication: CHRONIC HEPATITIS C
     Dosage: 400 MG, UNK
     Route: 048
     Dates: start: 20150304, end: 20150317
  4. NEXIUM [Concomitant]
     Active Substance: ESOMEPRAZOLE MAGNESIUM
     Indication: PROPHYLAXIS AGAINST GASTROINTESTINAL ULCER
     Dosage: 20 MG, UNK
     Route: 048
     Dates: start: 2013
  5. PORTOLAC [Concomitant]
     Active Substance: LACTITOL
     Indication: HEPATIC ENCEPHALOPATHY PROPHYLAXIS
     Dosage: 2 DF, UNK
     Route: 048
     Dates: start: 2013
  6. REBETOL [Suspect]
     Active Substance: RIBAVIRIN
     Indication: CHRONIC HEPATITIS C
     Dosage: 600 MG, UNK
     Route: 048
     Dates: start: 20150304, end: 20150317
  7. INDERAL [Concomitant]
     Active Substance: PROPRANOLOL HYDROCHLORIDE
     Indication: HAEMORRHAGE PROPHYLAXIS
     Dosage: 80 MG, UNK
     Route: 048
  8. NEORECORMON [Concomitant]
     Active Substance: ERYTHROPOIETIN
     Indication: ANAEMIA
     Dosage: 30000 IU, UNK
     Route: 058
     Dates: start: 2013
  9. LUVION                             /00252501/ [Concomitant]
     Active Substance: CANRENONE
     Indication: ASCITES
     Dosage: 100 MG, UNK
     Route: 048
     Dates: start: 2013
  10. LEVEMIR [Concomitant]
     Active Substance: INSULIN DETEMIR
     Indication: DIABETES MELLITUS
     Dosage: 14 IU, UNK
     Route: 042
     Dates: start: 2013

REACTIONS (5)
  - Haemolytic anaemia [Recovered/Resolved]
  - Liver transplant [Unknown]
  - Hydrothorax [Unknown]
  - Bleeding varicose vein [Unknown]
  - Anaemia [Unknown]

NARRATIVE: CASE EVENT DATE: 20150316
